FAERS Safety Report 14317568 (Version 6)
Quarter: 2018Q1

REPORT INFORMATION
  Report Type: Spontaneous
  Country: NL (occurrence: NL)
  Receive Date: 20171222
  Receipt Date: 20180327
  Transmission Date: 20180509
  Serious: Yes (Other)
  Sender: FDA-Public Use
  Company Number: NL-JNJFOC-20171220923

PATIENT
  Age: 46 Year
  Sex: Female

DRUGS (3)
  1. USTEKINUMAB [Suspect]
     Active Substance: USTEKINUMAB
     Indication: PSORIASIS
     Route: 058
     Dates: start: 20140301
  2. USTEKINUMAB [Suspect]
     Active Substance: USTEKINUMAB
     Indication: PSORIASIS
     Route: 058
     Dates: start: 20140201
  3. HUMIRA [Suspect]
     Active Substance: ADALIMUMAB
     Indication: PSORIASIS
     Route: 058
     Dates: start: 20131001, end: 20140101

REACTIONS (5)
  - Abdominal distension [Recovered/Resolved]
  - Medication error [Unknown]
  - Neoplasm malignant [Recovered/Resolved]
  - Drug ineffective [Unknown]
  - Mycosis fungoides [Recovered/Resolved]

NARRATIVE: CASE EVENT DATE: 20140401
